FAERS Safety Report 5734446-6 (Version None)
Quarter: 2008Q2

REPORT INFORMATION
  Report Type: 
  Country: None (occurrence: None)
  Receive Date: 20080508
  Receipt Date: 20080508
  Transmission Date: 20081010
  Serious: Yes (Other)
  Sender: FDA-Public Use
  Company Number: None

PATIENT
  Age: 21 Year
  Sex: Female

DRUGS (1)
  1. ISOVUE-370 [Suspect]
     Dosage: 100 ML
     Dates: start: 20071009, end: 20071009

REACTIONS (4)
  - CHILLS [None]
  - EAR DISORDER [None]
  - FEELING ABNORMAL [None]
  - THROAT IRRITATION [None]
